FAERS Safety Report 25903557 (Version 1)
Quarter: 2025Q4

REPORT INFORMATION
  Report Type: Spontaneous
  Country: GB (occurrence: GB)
  Receive Date: 20251010
  Receipt Date: 20251010
  Transmission Date: 20260118
  Serious: Yes (Life-Threatening, Other)
  Sender: CELLTRION
  Company Number: None

PATIENT

DRUGS (1)
  1. RITUXIMAB [Suspect]
     Active Substance: RITUXIMAB
     Indication: Guillain-Barre syndrome
     Dosage: 1 GRAM STAT, RECEIVED X2 DOSES OF RITUXIMAB)
     Dates: start: 20250730

REACTIONS (2)
  - Nephrotic syndrome [Not Recovered/Not Resolved]
  - Intentional product use issue [Unknown]
